FAERS Safety Report 6438044-0 (Version None)
Quarter: 2009Q4

REPORT INFORMATION
  Report Type: 
  Country: None (occurrence: None)
  Receive Date: 20091112
  Receipt Date: 20091104
  Transmission Date: 20100525
  Serious: Yes (Hospitalization, Other)
  Sender: FDA-Public Use
  Company Number: US-JNJCH-2009029036

PATIENT
  Age: 62 Year
  Sex: Female
  Weight: 44.5 kg

DRUGS (1)
  1. LISTERINE [Suspect]
     Indication: ALCOHOLIC
     Dosage: TEXT:UNSPECIFIED AMOUNT IN MORNING AND DAILY
     Route: 048

REACTIONS (6)
  - ALCOHOLISM [None]
  - DEPENDENCE [None]
  - DRUG ABUSE [None]
  - FALL [None]
  - HIP FRACTURE [None]
  - INCORRECT ROUTE OF DRUG ADMINISTRATION [None]
